FAERS Safety Report 13927856 (Version 1)
Quarter: 2017Q3

REPORT INFORMATION
  Report Type: Spontaneous
  Country: US (occurrence: None)
  Receive Date: 20170831
  Receipt Date: 20170831
  Transmission Date: 20171127
  Serious: Yes (Life-Threatening, Hospitalization)
  Sender: FDA-Public Use
  Company Number: None

PATIENT
  Age: 64 Year
  Sex: Male
  Weight: 91.58 kg

DRUGS (2)
  1. AMLODIPINE/BENAZEPRIL [Suspect]
     Active Substance: AMLODIPINE BESYLATE\BENAZEPRIL HYDROCHLORIDE
     Indication: HYPERTENSION
     Route: 048
     Dates: start: 20170720, end: 20170721
  2. LOSARTAN. [Suspect]
     Active Substance: LOSARTAN
     Indication: HYPERTENSION
     Route: 048
     Dates: start: 20170720, end: 20170721

REACTIONS (9)
  - Heart rate increased [None]
  - Swelling face [None]
  - Endocarditis [None]
  - Blood pressure decreased [None]
  - Angioedema [None]
  - Pelvic abscess [None]
  - Subcutaneous abscess [None]
  - Leukocytosis [None]
  - Nausea [None]

NARRATIVE: CASE EVENT DATE: 20170721
